FAERS Safety Report 13931136 (Version 4)
Quarter: 2018Q2

REPORT INFORMATION
  Report Type: Report from Study
  Country: US (occurrence: US)
  Receive Date: 20170902
  Receipt Date: 20180518
  Transmission Date: 20180711
  Serious: Yes (Other)
  Sender: FDA-Public Use
  Company Number: PHEH2017US027772

PATIENT
  Sex: Female
  Weight: 60.78 kg

DRUGS (1)
  1. COSENTYX [Suspect]
     Active Substance: SECUKINUMAB
     Indication: ANKYLOSING SPONDYLITIS
     Dosage: 300 MG, QMO
     Route: 058
     Dates: start: 201701

REACTIONS (5)
  - Escherichia infection [Unknown]
  - Influenza like illness [Unknown]
  - Kidney infection [Unknown]
  - Nasopharyngitis [Unknown]
  - Drug ineffective [Unknown]
